FAERS Safety Report 19804105 (Version 3)
Quarter: 2021Q4

REPORT INFORMATION
  Report Type: Spontaneous
  Country: CN (occurrence: CN)
  Receive Date: 20210908
  Receipt Date: 20211018
  Transmission Date: 20220304
  Serious: Yes (Hospitalization, Other)
  Sender: FDA-Public Use
  Company Number: CN-PFIZER INC-202101155509

PATIENT
  Age: 71 Year
  Sex: Male

DRUGS (9)
  1. MEROPENEM [Interacting]
     Active Substance: MEROPENEM
     Indication: Pneumonitis
     Dosage: 1.5 G, 3X/DAY (TID)
     Route: 041
  2. MEROPENEM [Interacting]
     Active Substance: MEROPENEM
     Dosage: 0.5 G, 3X/DAY
  3. VALPROATE SODIUM [Interacting]
     Active Substance: VALPROATE SODIUM
     Indication: Epilepsy
     Dosage: 0.2 G, 3X/DAY
     Route: 048
  4. VALPROATE SODIUM [Interacting]
     Active Substance: VALPROATE SODIUM
     Dosage: 0.4 G, 2X/DAY, THROUGH VENOUS PUMP
  5. PIPERACILLIN AND TAZOBACTAM [Concomitant]
     Active Substance: PIPERACILLIN SODIUM\TAZOBACTAM SODIUM
     Indication: Anti-infective therapy
     Dosage: 5 G, 3X/DAY
  6. PIPERACILLIN AND TAZOBACTAM [Concomitant]
     Active Substance: PIPERACILLIN SODIUM\TAZOBACTAM SODIUM
     Dosage: 5 G, 2X/DAY
  7. TEICOPLANIN [Concomitant]
     Active Substance: TEICOPLANIN
     Indication: Anti-infective therapy
     Dosage: 200 MG, 1X/DAY
  8. TEICOPLANIN [Concomitant]
     Active Substance: TEICOPLANIN
     Dosage: 200 G, 1X/DAY
  9. CLOPIDOGREL BISULFATE [Concomitant]
     Active Substance: CLOPIDOGREL BISULFATE
     Indication: Platelet aggregation inhibition
     Dosage: 50 MG, 1X/DAY

REACTIONS (5)
  - Labelled drug-drug interaction medication error [Recovered/Resolved]
  - Product use issue [Recovered/Resolved]
  - Drug interaction [Recovered/Resolved]
  - Anticonvulsant drug level below therapeutic [Recovered/Resolved]
  - Epilepsy [Recovered/Resolved]
